FAERS Safety Report 6262476-7 (Version None)
Quarter: 2009Q3

REPORT INFORMATION
  Report Type: 
  Country: None (occurrence: None)
  Receive Date: 20090709
  Receipt Date: 20090630
  Transmission Date: 20100115
  Serious: Yes (Hospitalization)
  Sender: FDA-Public Use
  Company Number: IT-WYE-H09961509

PATIENT
  Age: 69 Year
  Sex: Male

DRUGS (3)
  1. VENLAFAXINE HYDROCHLORIDE [Suspect]
     Indication: COTARD'S SYNDROME
     Route: 048
  2. OLANZAPINE [Suspect]
     Indication: COTARD'S SYNDROME
     Route: 048
  3. OLANZAPINE [Suspect]
     Route: 048

REACTIONS (5)
  - CONFUSIONAL STATE [None]
  - DISORIENTATION [None]
  - DRUG INEFFECTIVE FOR UNAPPROVED INDICATION [None]
  - HALLUCINATION, VISUAL [None]
  - PERSECUTORY DELUSION [None]
